FAERS Safety Report 6967760-7 (Version None)
Quarter: 2010Q3

REPORT INFORMATION
  Report Type: 
  Country: None (occurrence: None)
  Receive Date: 20100907
  Receipt Date: 20100831
  Transmission Date: 20110219
  Serious: Yes (Death, Hospitalization, Other)
  Sender: FDA-Public Use
  Company Number: JP-PFIZER INC-2010017303

PATIENT
  Age: 82 Year
  Sex: Male
  Weight: 49 kg

DRUGS (3)
  1. SUNITINIB MALATE [Suspect]
     Indication: RENAL CELL CARCINOMA
     Dosage: 50 MG, 1X/DAY
     Route: 048
     Dates: start: 20090414, end: 20090426
  2. SUNITINIB MALATE [Suspect]
     Dosage: 37.5 MG, 1X/DAY
     Route: 048
     Dates: start: 20090529, end: 20090616
  3. SODIUM BICARBONATE [Concomitant]
     Dosage: UNK
     Route: 048

REACTIONS (3)
  - CEREBRAL HAEMORRHAGE [None]
  - HYPERTENSION [None]
  - PLATELET COUNT DECREASED [None]
